FAERS Safety Report 8894934 (Version 2)
Quarter: 2012Q4

REPORT INFORMATION
  Report Type: 
  Country: US (occurrence: US)
  Receive Date: 20121108
  Receipt Date: 20121128
  Transmission Date: 20130627
  Serious: Yes (Hospitalization)
  Sender: FDA-Public Use
  Company Number: US-CELGENEUS-163-21880-12110871

PATIENT
  Age: 64 Year
  Sex: Female
  Weight: 71.28 kg

DRUGS (9)
  1. REVLIMID [Suspect]
     Indication: MULTIPLE MYELOMA
     Dosage: 5 Milligram
     Route: 048
     Dates: start: 20121022, end: 20121026
  2. ZOLPIDEM [Concomitant]
     Indication: INSOMNIA
     Route: 048
  3. WELLBUTRIN [Concomitant]
     Indication: DEPRESSION
     Route: 048
  4. VITAMIN D [Concomitant]
     Indication: SUPPLEMENTATION THERAPY
     Route: 048
  5. METFORMIN [Concomitant]
     Indication: DIABETES MELLITUS
     Route: 048
  6. LEVOTHYROXINE [Concomitant]
     Indication: HYPOTHYROIDISM
     Route: 048
  7. LANTUS [Concomitant]
     Indication: DIABETES MELLITUS
     Route: 058
  8. CLONIDINE [Concomitant]
     Indication: DRUG USE FOR UNKNOWN INDICATION
     Route: 048
  9. DEXAMETHASONE [Concomitant]
     Indication: MYELOMA
     Route: 048

REACTIONS (2)
  - Blood pressure increased [Recovered/Resolved with Sequelae]
  - Convulsion [Recovered/Resolved]
